FAERS Safety Report 20279066 (Version 1)
Quarter: 2022Q1

REPORT INFORMATION
  Report Type: Spontaneous
  Country: GB (occurrence: None)
  Receive Date: 20220103
  Receipt Date: 20220103
  Transmission Date: 20220423
  Serious: Yes (Other)
  Sender: FDA-Public Use
  Company Number: GB-ROCHE-2993524

PATIENT
  Age: 47 Year

DRUGS (2)
  1. RITUXIMAB [Suspect]
     Active Substance: RITUXIMAB
     Indication: Product used for unknown indication
     Route: 065
  2. KYMRIAH [Suspect]
     Active Substance: TISAGENLECLEUCEL
     Indication: Diffuse large B-cell lymphoma stage II
     Route: 042

REACTIONS (4)
  - Cytokine release syndrome [Unknown]
  - Immune effector cell-associated neurotoxicity syndrome [Unknown]
  - Hypogammaglobulinaemia [Unknown]
  - Urosepsis [Unknown]
